FAERS Safety Report 9206936 (Version 1)
Quarter: 2013Q2

REPORT INFORMATION
  Report Type: Spontaneous
  Country: US (occurrence: US)
  Receive Date: 20130403
  Receipt Date: 20130403
  Transmission Date: 20140414
  Serious: Yes (Other)
  Sender: FDA-Public Use
  Company Number: US-BAYER-2013-038362

PATIENT
  Age: 55 Year
  Sex: Female
  Weight: 240.36 kg

DRUGS (5)
  1. ALEVE TABLET [Suspect]
     Indication: ARTHRITIS
     Dosage: 2 DF, ONCE
     Route: 048
     Dates: start: 201301, end: 201301
  2. TYLENOL NOS [Concomitant]
  3. FISH OIL [Concomitant]
  4. VITAMINS [Concomitant]
  5. RASPBERRY SUPPLEMENT [Concomitant]

REACTIONS (1)
  - Haemorrhoidal haemorrhage [None]
